FAERS Safety Report 9843989 (Version 1)
Quarter: 2013Q4

REPORT INFORMATION
  Report Type: Spontaneous
  Country: US (occurrence: None)
  Receive Date: 20131223
  Receipt Date: 20131223
  Transmission Date: 20140711
  Serious: No
  Sender: FDA-Public Use
  Company Number: 1000050632

PATIENT
  Sex: Female

DRUGS (4)
  1. LINZESS (LINACLOTIDE) (290 MICROGRAM, CAPSULES) [Suspect]
     Indication: IRRITABLE BOWEL SYNDROME
     Route: 048
     Dates: start: 201308, end: 20131027
  2. LINZESS (LINACLOTIDE) (145 MICROGRAM, CAPSULES) [Suspect]
     Indication: IRRITABLE BOWEL SYNDROME
     Route: 048
     Dates: start: 20131029
  3. EFFEXOR (VENLAFAXINE HYDROCHLORIDE) UNKNOWN [Suspect]
     Indication: DEPRESSION
     Dates: start: 2001
  4. ATIVAN (LORAZEPAM (LORAZEPAM) [Concomitant]

REACTIONS (10)
  - Diarrhoea [None]
  - Insomnia [None]
  - Hypersomnia [None]
  - Panic attack [None]
  - Drug ineffective [None]
  - Flatulence [None]
  - Abdominal distension [None]
  - Palpitations [None]
  - Bruxism [None]
  - Asthenia [None]
